FAERS Safety Report 4324098-4 (Version None)
Quarter: 2004Q1

REPORT INFORMATION
  Report Type: 
  Country: None (occurrence: None)
  Receive Date: 20040326
  Receipt Date: 20031218
  Transmission Date: 20041129
  Serious: No
  Sender: FDA-Public Use
  Company Number: US-GLAXOSMITHKLINE-A0443653A

PATIENT
  Age: 61 Year
  Sex: Female

DRUGS (10)
  1. ADVAIR DISKUS 100/50 [Suspect]
     Indication: ASTHMA
     Route: 055
     Dates: end: 20031217
  2. ESTRADIOL [Concomitant]
  3. UNKNOWN MEDICATION [Concomitant]
  4. SYNTHROID [Concomitant]
  5. MULTI-VITAMIN [Concomitant]
  6. VIT. B [Concomitant]
  7. VIT. C [Concomitant]
  8. MAGNESIUM [Concomitant]
  9. GLUCOSAMINE/CHONDROITIN [Concomitant]
  10. CALCIUM [Concomitant]

REACTIONS (5)
  - DIZZINESS [None]
  - DRUG INEFFECTIVE [None]
  - HEADACHE [None]
  - INSOMNIA [None]
  - PALPITATIONS [None]
